FAERS Safety Report 18037867 (Version 3)
Quarter: 2021Q2

REPORT INFORMATION
  Report Type: Spontaneous
  Country: US (occurrence: US)
  Receive Date: 20200717
  Receipt Date: 20210517
  Transmission Date: 20210717
  Serious: Yes (Other)
  Sender: FDA-Public Use
  Company Number: US-GLAXOSMITHKLINE-US2020134584

PATIENT
  Sex: Male

DRUGS (18)
  1. ZANTAC [Suspect]
     Active Substance: RANITIDINE HYDROCHLORIDE
     Indication: OESOPHAGEAL IRRITATION
     Dosage: 150 MG, QD
     Route: 065
     Dates: start: 198401, end: 201912
  2. RANITIDINE. [Suspect]
     Active Substance: RANITIDINE
     Indication: OESOPHAGEAL IRRITATION
     Dosage: 150 MG, QD
     Route: 065
     Dates: start: 198401, end: 201912
  3. ZANTAC [Suspect]
     Active Substance: RANITIDINE HYDROCHLORIDE
     Dosage: UNK
  4. ZANTAC [Suspect]
     Active Substance: RANITIDINE HYDROCHLORIDE
     Indication: DYSPEPSIA
     Dosage: 75 MG BOTH
     Route: 065
     Dates: start: 198401, end: 201912
  5. RANITIDINE CAPSULE [Suspect]
     Active Substance: RANITIDINE
     Indication: OESOPHAGEAL IRRITATION
     Dosage: 75 MG OVER THE COUNTER
     Route: 065
     Dates: start: 198401, end: 201912
  6. RANITIDINE. [Suspect]
     Active Substance: RANITIDINE
     Indication: DYSPEPSIA
     Dosage: 75 MG OVER THE COUNTER
     Route: 065
     Dates: start: 198401, end: 201912
  7. ZANTAC [Suspect]
     Active Substance: RANITIDINE HYDROCHLORIDE
     Indication: OESOPHAGEAL IRRITATION
     Dosage: 150 MG, QD
     Route: 065
     Dates: start: 198401, end: 201912
  8. RANITIDINE CAPSULE [Suspect]
     Active Substance: RANITIDINE
     Indication: DYSPEPSIA
     Dosage: 75 MG BOTH
     Route: 065
     Dates: start: 198401, end: 201912
  9. RANITIDINE CAPSULE [Suspect]
     Active Substance: RANITIDINE
     Indication: OESOPHAGEAL IRRITATION
     Dosage: 150 MG, QD
     Route: 065
     Dates: start: 198401, end: 201912
  10. ZANTAC [Suspect]
     Active Substance: RANITIDINE HYDROCHLORIDE
  11. ZANTAC [Suspect]
     Active Substance: RANITIDINE HYDROCHLORIDE
     Dosage: UNK
  12. ZANTAC [Suspect]
     Active Substance: RANITIDINE HYDROCHLORIDE
     Indication: DYSPEPSIA
     Dosage: 75 MG BOTH
     Route: 065
     Dates: start: 198401, end: 201912
  13. ZANTAC [Suspect]
     Active Substance: RANITIDINE HYDROCHLORIDE
     Dosage: UNK
  14. ZANTAC [Suspect]
     Active Substance: RANITIDINE HYDROCHLORIDE
     Dosage: UNK
  15. RANITIDINE. [Suspect]
     Active Substance: RANITIDINE
     Dosage: UNK
  16. ZANTAC [Suspect]
     Active Substance: RANITIDINE HYDROCHLORIDE
     Dosage: UNK
  17. ZANTAC [Suspect]
     Active Substance: RANITIDINE HYDROCHLORIDE
     Indication: DYSPEPSIA
     Dosage: 75 MG BOTH
     Route: 065
     Dates: start: 198401, end: 201912
  18. ZANTAC [Suspect]
     Active Substance: RANITIDINE HYDROCHLORIDE
     Indication: OESOPHAGEAL IRRITATION
     Dosage: 150 MG, QD
     Route: 065
     Dates: start: 198401, end: 201912

REACTIONS (2)
  - Colorectal cancer [Unknown]
  - Appendix cancer [Unknown]
